FAERS Safety Report 13414692 (Version 3)
Quarter: 2018Q2

REPORT INFORMATION
  Report Type: Report from Study
  Country: BR (occurrence: BR)
  Receive Date: 20170406
  Receipt Date: 20180423
  Transmission Date: 20180711
  Serious: Yes (Hospitalization, Other)
  Sender: FDA-Public Use
  Company Number: BR-JNJFOC-20170402505

PATIENT
  Age: 68 Year
  Sex: Female
  Weight: 75 kg

DRUGS (6)
  1. VITAMIN D [Concomitant]
     Active Substance: CHOLECALCIFEROL
     Route: 065
  2. METHOTREXATE. [Suspect]
     Active Substance: METHOTREXATE
     Indication: PRODUCT USED FOR UNKNOWN INDICATION
     Route: 065
  3. SIMPONI [Suspect]
     Active Substance: GOLIMUMAB
     Indication: RHEUMATOID ARTHRITIS
     Route: 058
     Dates: start: 20150829
  4. ACETYLCYSTEIN [Concomitant]
     Active Substance: ACETYLCYSTEINE
     Route: 065
  5. PAROXETINE. [Concomitant]
     Active Substance: PAROXETINE
     Route: 065
  6. LASIX [Concomitant]
     Active Substance: FUROSEMIDE
     Route: 065

REACTIONS (4)
  - Arthralgia [Unknown]
  - Renal failure [Not Recovered/Not Resolved]
  - Pneumonia [Unknown]
  - Drug dose omission [Unknown]

NARRATIVE: CASE EVENT DATE: 201702
